FAERS Safety Report 5326845-1 (Version None)
Quarter: 2007Q2

REPORT INFORMATION
  Report Type: 
  Country: None (occurrence: None)
  Receive Date: 20070507
  Receipt Date: 20070424
  Transmission Date: 20071010
  Serious: Yes (Other)
  Sender: FDA-Public Use
  Company Number: 2007317746

PATIENT
  Sex: Male

DRUGS (1)
  1. NICORETTE [Suspect]
     Dosage: TRANSDERMAL
     Route: 062

REACTIONS (2)
  - HYPERSENSITIVITY [None]
  - LUNG NEOPLASM MALIGNANT [None]
